FAERS Safety Report 21437108 (Version 3)
Quarter: 2022Q4

REPORT INFORMATION
  Report Type: Spontaneous
  Country: RO (occurrence: None)
  Receive Date: 20221010
  Receipt Date: 20221109
  Transmission Date: 20230113
  Serious: Yes (Death, Other)
  Sender: FDA-Public Use
  Company Number: RO-ROCHE-3194369

PATIENT
  Age: 76 Year
  Sex: Male

DRUGS (7)
  1. ESBRIET [Suspect]
     Active Substance: PIRFENIDONE
     Indication: Idiopathic pulmonary fibrosis
     Route: 065
  2. NOLIPREL [Concomitant]
  3. BISOPROLOL FUMARATE [Concomitant]
     Active Substance: BISOPROLOL FUMARATE
  4. PROPAFENONE [Concomitant]
     Active Substance: PROPAFENONE
  5. ASPIRIN [Concomitant]
     Active Substance: ASPIRIN
  6. SINTROM [Concomitant]
     Active Substance: ACENOCOUMAROL
  7. TAMSULOSIN HYDROCHLORIDE [Concomitant]
     Active Substance: TAMSULOSIN HYDROCHLORIDE

REACTIONS (10)
  - Pancreatic carcinoma [Unknown]
  - Metastases to liver [Unknown]
  - Transaminases increased [Unknown]
  - Nausea [Unknown]
  - Weight decreased [Unknown]
  - Gamma-glutamyltransferase increased [Unknown]
  - Ascites [Unknown]
  - Hepatosplenomegaly [Unknown]
  - Diverticulum intestinal [Unknown]
  - Death [Fatal]

NARRATIVE: CASE EVENT DATE: 20220801
